FAERS Safety Report 6394624-2 (Version None)
Quarter: 2009Q4

REPORT INFORMATION
  Report Type: 
  Country: None (occurrence: None)
  Receive Date: 20091009
  Receipt Date: 20091001
  Transmission Date: 20100525
  Serious: Yes (Death)
  Sender: FDA-Public Use
  Company Number: CA-ROCHE-659755

PATIENT
  Sex: Male

DRUGS (2)
  1. XELODA [Suspect]
     Route: 042
  2. OXALIPLATIN [Concomitant]
     Route: 042

REACTIONS (1)
  - GASTROINTESTINAL HAEMORRHAGE [None]
